FAERS Safety Report 9604097 (Version 1)
Quarter: 2013Q4

REPORT INFORMATION
  Report Type: Other
  Country: IT (occurrence: IT)
  Receive Date: 20131008
  Receipt Date: 20131008
  Transmission Date: 20140711
  Serious: Yes (Hospitalization)
  Sender: FDA-Public Use
  Company Number: IT-TAKEDA-2013TEU000276

PATIENT
  Sex: 0

DRUGS (4)
  1. COMPETACT [Suspect]
     Indication: DIABETES MELLITUS
     Dosage: UNK, QD
     Route: 048
     Dates: start: 20060101, end: 20130828
  2. QUARK [Concomitant]
     Dosage: UNK
  3. LIBRADIN [Concomitant]
     Dosage: 20 MG
     Route: 048
  4. LEVOFLOXACIN [Concomitant]
     Route: 048

REACTIONS (1)
  - Hypoglycaemia [Recovered/Resolved with Sequelae]
